FAERS Safety Report 14951104 (Version 2)
Quarter: 2018Q2

REPORT INFORMATION
  Report Type: Spontaneous
  Country: US (occurrence: US)
  Receive Date: 20180530
  Receipt Date: 20180622
  Transmission Date: 20180711
  Serious: No
  Sender: FDA-Public Use
  Company Number: US-ASTRAZENECA-2018SE65438

PATIENT
  Sex: Female
  Weight: 89.4 kg

DRUGS (2)
  1. TOUJEO [Concomitant]
     Active Substance: INSULIN GLARGINE
  2. BYDUREON BCISE [Suspect]
     Active Substance: EXENATIDE
     Indication: GLYCOSYLATED HAEMOGLOBIN
     Route: 058

REACTIONS (6)
  - Blood glucose decreased [Unknown]
  - Drug dose omission [Unknown]
  - Device malfunction [Unknown]
  - Panic reaction [Unknown]
  - Nervousness [Unknown]
  - Wrong technique in device usage process [Unknown]
